FAERS Safety Report 12530687 (Version 1)
Quarter: 2016Q3

REPORT INFORMATION
  Report Type: Spontaneous
  Country: GB (occurrence: GB)
  Receive Date: 20160706
  Receipt Date: 20160706
  Transmission Date: 20161109
  Serious: Yes (Other)
  Sender: FDA-Public Use
  Company Number: GB-TEVA-671528ACC

PATIENT
  Age: 21 Year
  Sex: Female

DRUGS (7)
  1. PAROXETINE. [Suspect]
     Active Substance: PAROXETINE
     Indication: PRODUCT USED FOR UNKNOWN INDICATION
     Dosage: 10 MG, UNK
     Route: 065
     Dates: start: 19970207
  2. PARAMAX [Concomitant]
     Active Substance: ACETAMINOPHEN
     Indication: MIGRAINE
     Dates: start: 19970522
  3. DIAZEPAM. [Concomitant]
     Active Substance: DIAZEPAM
     Indication: PANIC ATTACK
     Dosage: 5 MG, UNK
     Route: 005
     Dates: start: 19981224
  4. SEROXAT [Suspect]
     Active Substance: PAROXETINE HYDROCHLORIDE
     Indication: PRODUCT USED FOR UNKNOWN INDICATION
     Route: 065
     Dates: start: 19960920, end: 199805
  5. PROPRANOLOL [Concomitant]
     Active Substance: PROPRANOLOL\PROPRANOLOL HYDROCHLORIDE
     Indication: PRODUCT USED FOR UNKNOWN INDICATION
     Dosage: 40 MG, UNK
     Dates: start: 1998
  6. ZIMOVANE [Concomitant]
     Active Substance: ZOPICLONE
     Indication: POOR QUALITY SLEEP
     Dosage: 7.5 MILLIGRAM DAILY; 7.5 MG, UNK
     Dates: start: 19970211
  7. PAROXETINE. [Suspect]
     Active Substance: PAROXETINE
     Dosage: 20 MG, UNK
     Route: 065

REACTIONS (46)
  - Hallucination, auditory [Unknown]
  - Asthenia [Unknown]
  - Dizziness [Unknown]
  - Diarrhoea [Unknown]
  - Feeling hot [Unknown]
  - Food craving [Unknown]
  - Ill-defined disorder [Unknown]
  - Adverse drug reaction [Unknown]
  - Performance status decreased [Unknown]
  - Weight increased [Unknown]
  - Paraesthesia [Unknown]
  - Tremor [Unknown]
  - Myoclonus [Unknown]
  - Limb discomfort [Unknown]
  - Migraine [Unknown]
  - Disorientation [Unknown]
  - Poor quality sleep [Unknown]
  - Depression [Unknown]
  - Withdrawal syndrome [Unknown]
  - Lethargy [Unknown]
  - Tachycardia [Unknown]
  - Menstruation irregular [Unknown]
  - Panic reaction [Unknown]
  - Depersonalisation/derealisation disorder [Unknown]
  - Anxiety disorder [Unknown]
  - Treatment noncompliance [Unknown]
  - Malaise [Unknown]
  - Fatigue [Unknown]
  - Dry mouth [Unknown]
  - Nausea [Unknown]
  - Withdrawal syndrome [Not Recovered/Not Resolved]
  - Suicidal ideation [Unknown]
  - Acne [Unknown]
  - Influenza like illness [Unknown]
  - Hyperacusis [Unknown]
  - Obesity [Unknown]
  - Panic disorder [Unknown]
  - Hypoglycaemia [Unknown]
  - Vomiting [Unknown]
  - Balance disorder [Unknown]
  - Condition aggravated [Unknown]
  - Hallucination, visual [Unknown]
  - Anxiety [Unknown]
  - Vision blurred [Unknown]
  - Myalgia [Unknown]
  - Abdominal pain upper [Unknown]

NARRATIVE: CASE EVENT DATE: 199803
